FAERS Safety Report 8361074-9 (Version None)
Quarter: 2012Q2

REPORT INFORMATION
  Report Type: 
  Country: None (occurrence: None)
  Receive Date: 20120515
  Receipt Date: 20120508
  Transmission Date: 20120825
  Serious: Yes (Other)
  Sender: FDA-Public Use
  Company Number: US-BAYER-2011-091088

PATIENT
  Age: 20 Year
  Sex: Female
  Weight: 99.773 kg

DRUGS (4)
  1. NSAID'S [Concomitant]
  2. ALBUTEROL [Concomitant]
  3. YAZ [Suspect]
     Indication: CONTRACEPTION
     Dosage: UNK
     Dates: start: 20090701, end: 20090901
  4. ANTIBIOTICS [Concomitant]

REACTIONS (6)
  - ANXIETY [None]
  - DEEP VEIN THROMBOSIS [None]
  - PAIN [None]
  - PSYCHOLOGICAL TRAUMA [None]
  - EMOTIONAL DISTRESS [None]
  - CELLULITIS [None]
